FAERS Safety Report 8287757-7 (Version None)
Quarter: 2012Q2

REPORT INFORMATION
  Report Type: 
  Country: None (occurrence: None)
  Receive Date: 20120416
  Receipt Date: 20120409
  Transmission Date: 20120825
  Serious: No
  Sender: FDA-Public Use
  Company Number: US-B.I. PHARMACEUTICALS,INC./RIDGEFIELD-2012-BP-06583BP

PATIENT
  Age: 74 Year
  Sex: Female

DRUGS (5)
  1. VALIUM [Concomitant]
     Indication: ANXIETY
     Route: 048
  2. SPIRIVA [Suspect]
     Indication: CHRONIC OBSTRUCTIVE PULMONARY DISEASE
     Dosage: 18 MCG
     Route: 055
     Dates: start: 20120401
  3. VICODIN [Concomitant]
     Indication: NECK PAIN
     Route: 048
  4. COMBIVENT [Concomitant]
     Indication: CHRONIC OBSTRUCTIVE PULMONARY DISEASE
     Route: 055
  5. SOMA [Concomitant]
     Indication: NECK PAIN
     Dosage: 1050 MG
     Route: 048

REACTIONS (2)
  - EYE PAIN [None]
  - VISION BLURRED [None]
